FAERS Safety Report 11251239 (Version 1)
Quarter: 2015Q3

REPORT INFORMATION
  Report Type: Spontaneous
  Country: CN (occurrence: CN)
  Receive Date: 20150708
  Receipt Date: 20150708
  Transmission Date: 20151125
  Serious: Yes (Hospitalization)
  Sender: FDA-Public Use
  Company Number: CN-PFIZER INC-2015227457

PATIENT
  Age: 32 Year
  Sex: Female
  Weight: 52 kg

DRUGS (6)
  1. MECOBALAMIN [Concomitant]
     Active Substance: METHYLCOBALAMIN
     Indication: BLOOD DISORDER
     Dosage: 1 MG, 1X/DAY
     Route: 042
     Dates: start: 20150121, end: 20150208
  2. MOUSE NERVE GROWTH FACTOR [Concomitant]
     Indication: NERVE DEGENERATION
     Dosage: 30 UG, 1X/DAY
     Route: 030
     Dates: start: 20150121, end: 20150203
  3. HUMAN IMMUNOGLOBULIN [Concomitant]
     Active Substance: HUMAN IMMUNOGLOBULIN G
     Indication: IMMUNOSUPPRESSION
     Dosage: 20 G, 1X/DAY
     Route: 042
     Dates: start: 20150121, end: 20150123
  4. SOLU-MEDROL [Suspect]
     Active Substance: METHYLPREDNISOLONE SODIUM SUCCINATE
     Indication: INFECTION
     Dosage: 1 G, 1X/DAY
     Route: 042
     Dates: start: 20150120, end: 20150127
  5. PREDNISONE ACETATE [Suspect]
     Active Substance: PREDNISONE ACETATE
     Indication: INFECTION
     Dosage: 60 MG, 1X/DAY
     Route: 048
     Dates: start: 20150127, end: 20150209
  6. OMEPRAZOLE SODIUM [Suspect]
     Active Substance: OMEPRAZOLE SODIUM
     Indication: PROPHYLAXIS AGAINST GASTROINTESTINAL ULCER
     Dosage: 60 MG, 1X/DAY
     Route: 042
     Dates: start: 20150121, end: 20150128

REACTIONS (4)
  - Liver function test abnormal [Recovering/Resolving]
  - Rash [Recovering/Resolving]
  - Abdominal discomfort [Recovering/Resolving]
  - Menstruation irregular [Recovering/Resolving]

NARRATIVE: CASE EVENT DATE: 20150125
